FAERS Safety Report 11206538 (Version 1)
Quarter: 2015Q2

REPORT INFORMATION
  Report Type: Spontaneous
  Country: US (occurrence: None)
  Receive Date: 20150618
  Receipt Date: 20150618
  Transmission Date: 20150821
  Serious: No
  Sender: FDA-Public Use
  Company Number: None

PATIENT
  Age: 64 Year
  Sex: Female
  Weight: 80.29 kg

DRUGS (16)
  1. AMOXICILLIN. [Concomitant]
     Active Substance: AMOXICILLIN
  2. FLUTICASONE [Concomitant]
     Active Substance: FLUTICASONE\FLUTICASONE PROPIONATE
  3. MULTI VITAMINS [Concomitant]
  4. XELJANZ [Suspect]
     Active Substance: TOFACITINIB CITRATE
     Indication: RHEUMATOID ARTHRITIS
     Route: 048
     Dates: start: 20150201, end: 20150528
  5. CYANOCOBALIMIN [Concomitant]
  6. OXYCODONE [Concomitant]
     Active Substance: OXYCODONE
  7. COQ10 [Concomitant]
     Active Substance: UBIDECARENONE
  8. LEVOTHYROXINE [Concomitant]
     Active Substance: LEVOTHYROXINE
  9. ACETAMINOPHEN. [Concomitant]
     Active Substance: ACETAMINOPHEN
  10. IRON [Concomitant]
     Active Substance: IRON
  11. HYDROCONDONE-HOMATROPINE [Concomitant]
  12. IBURPROFEN [Concomitant]
  13. TRAZDONE [Concomitant]
     Active Substance: TRAZODONE HYDROCHLORIDE
  14. CALCIUM [Concomitant]
     Active Substance: CALCIUM
  15. QVAR [Concomitant]
     Active Substance: BECLOMETHASONE DIPROPIONATE
  16. FISH OIL [Concomitant]
     Active Substance: FISH OIL

REACTIONS (10)
  - Abdominal pain upper [None]
  - Flatulence [None]
  - Infection [None]
  - Product quality issue [None]
  - Onychomycosis [None]
  - Vomiting [None]
  - Memory impairment [None]
  - Fatigue [None]
  - Sinusitis [None]
  - Nasopharyngitis [None]

NARRATIVE: CASE EVENT DATE: 20150528
